FAERS Safety Report 9176445 (Version 1)
Quarter: 2013Q1

REPORT INFORMATION
  Report Type: Spontaneous
  Country: US (occurrence: None)
  Receive Date: 20130320
  Receipt Date: 20130320
  Transmission Date: 20140127
  Serious: Yes (Other)
  Sender: FDA-Public Use
  Company Number: None

PATIENT
  Age: 59 Year
  Sex: Female

DRUGS (1)
  1. ADCIRCA [Suspect]
     Indication: PULMONARY ARTERIAL HYPERTENSION
     Dosage: ADCIRCA 20 MG (2) DAILY PO
     Route: 048
     Dates: start: 20121126, end: 20130219

REACTIONS (3)
  - Myalgia [None]
  - Abasia [None]
  - Eye disorder [None]
